FAERS Safety Report 4910795-6 (Version None)
Quarter: 2006Q1

REPORT INFORMATION
  Report Type: 
  Country: None (occurrence: None)
  Receive Date: 20060210
  Receipt Date: 20060210
  Transmission Date: 20060701
  Serious: Yes (Death)
  Sender: FDA-Public Use
  Company Number: None

PATIENT
  Sex: Male
  Weight: 19 kg

DRUGS (5)
  1. CYTARABINE [Suspect]
     Indication: PRECURSOR T-LYMPHOBLASTIC LYMPHOMA/LEUKAEMIA
     Dosage: 70 MG
     Dates: start: 20060116, end: 20060116
  2. DAUNORUBICIN HCL [Suspect]
     Dosage: 37 MG
     Dates: start: 20060117, end: 20060125
  3. METHOTREXATE [Suspect]
     Dosage: 12 MG
     Dates: start: 20060125, end: 20060125
  4. PEG-L-ASPARAGINASE (K-H) [Suspect]
     Dosage: 1850 IU
     Dates: start: 20060120, end: 20060120
  5. VINCRISTINE SULFATE [Suspect]
     Dosage: 2.2 MG
     Dates: start: 20060117, end: 20060125

REACTIONS (14)
  - ASCITES [None]
  - BACTERIAL INFECTION [None]
  - CARDIO-RESPIRATORY ARREST [None]
  - CATHETER SITE OEDEMA [None]
  - DECREASED ACTIVITY [None]
  - GASTROINTESTINAL INFLAMMATION [None]
  - HYPOTENSION [None]
  - ORAL INTAKE REDUCED [None]
  - OXYGEN SATURATION DECREASED [None]
  - PALLOR [None]
  - PLEURAL EFFUSION [None]
  - SEPSIS [None]
  - SYSTEMIC INFLAMMATORY RESPONSE SYNDROME [None]
  - TACHYCARDIA [None]
